FAERS Safety Report 7085314-1 (Version None)
Quarter: 2010Q4

REPORT INFORMATION
  Report Type: 
  Country: None (occurrence: None)
  Receive Date: 20101105
  Receipt Date: 20101026
  Transmission Date: 20110411
  Serious: Yes (Death, Hospitalization)
  Sender: FDA-Public Use
  Company Number: AU-PFIZER INC-2010117018

PATIENT
  Age: 64 Year
  Sex: Male
  Weight: 94.1 kg

DRUGS (18)
  1. REVATIO [Suspect]
     Indication: PULMONARY ARTERIAL HYPERTENSION
     Dosage: AT 40MG EACH MORNING, 20MG AT MID-DAY AND 40MG AT NIGHT
     Route: 048
     Dates: start: 20100618, end: 20100823
  2. PREDNISOLONE [Concomitant]
     Indication: INTERSTITIAL LUNG DISEASE
     Dosage: 25 MG, 1X/DAY
     Route: 048
     Dates: start: 20050101, end: 20100823
  3. FRUSEMIDE [Concomitant]
     Indication: RIGHT VENTRICULAR FAILURE
     Dosage: 60 MG, 1X/DAY
     Route: 048
     Dates: start: 20100810, end: 20100823
  4. AUGMENTIN '125' [Concomitant]
     Indication: LOWER RESPIRATORY TRACT INFECTION
     Dosage: UNK, 1 TABLET TWICE DAILY
     Route: 048
     Dates: start: 20100810, end: 20100823
  5. PANTOPRAZOLE [Concomitant]
     Indication: REFLUX OESOPHAGITIS
     Dosage: 40 MG, 2X/DAY
     Route: 048
     Dates: start: 20060101, end: 20100823
  6. RANITIDINE [Concomitant]
     Indication: REFLUX OESOPHAGITIS
     Dosage: 150 MG, 2X/DAY
     Route: 048
     Dates: start: 20080101, end: 20100823
  7. OXYCODONE [Concomitant]
     Dosage: 10 MG, 2X/DAY
  8. MORPHINE SULFATE [Concomitant]
     Dosage: 30 MG, AS NEEDED
  9. PARACETAMOL [Concomitant]
     Dosage: 2 DOSES THREE TIMES DAILY
  10. SERETIDE [Concomitant]
     Dosage: ONE DOSE TWICE DAILY
  11. BISOLVON [Concomitant]
     Dosage: ONE DOSE THREE TIMES DAILY
  12. COLOXYL WITH SENNA [Concomitant]
     Dosage: ONE DOSE TWICE DAILY
  13. ATROVENT [Concomitant]
     Dosage: ONE NEBULE QID
  14. BECONASE [Concomitant]
     Dosage: 2 DOSES TWICE DAILY
  15. MYCOPHENOLATE MOFETIL [Concomitant]
     Dosage: 1 G, 2X/DAY
  16. HALOPERIDOL [Concomitant]
     Dosage: UNK
  17. ALPRAZOLAM [Concomitant]
     Dosage: UNK
  18. MIDAZOLAM [Concomitant]
     Dosage: UNK

REACTIONS (4)
  - CARDIAC FAILURE [None]
  - INTERSTITIAL LUNG DISEASE [None]
  - PULMONARY HYPERTENSION [None]
  - RESPIRATORY FAILURE [None]
